FAERS Safety Report 15576235 (Version 1)
Quarter: 2018Q4

REPORT INFORMATION
  Report Type: Spontaneous
  Country: IN (occurrence: IN)
  Receive Date: 20181101
  Receipt Date: 20181101
  Transmission Date: 20190205
  Serious: Yes (Other)
  Sender: FDA-Public Use
  Company Number: IN-FRESENIUS KABI-FK201811263

PATIENT
  Age: 56 Year
  Sex: Female

DRUGS (2)
  1. TIGECYCLINE (MANUFACTURER UNKNOWN) [Suspect]
     Active Substance: TIGECYCLINE
     Indication: ESCHERICHIA URINARY TRACT INFECTION
     Route: 065
  2. TIGECYCLINE (MANUFACTURER UNKNOWN) [Suspect]
     Active Substance: TIGECYCLINE
     Indication: ESCHERICHIA TEST POSITIVE

REACTIONS (2)
  - Sinus node dysfunction [Recovered/Resolved]
  - Supraventricular extrasystoles [Recovered/Resolved]
